FAERS Safety Report 7130203-7 (Version None)
Quarter: 2010Q4

REPORT INFORMATION
  Report Type: 
  Country: None (occurrence: None)
  Receive Date: 20101201
  Receipt Date: 20101122
  Transmission Date: 20110411
  Serious: Yes (Death)
  Sender: FDA-Public Use
  Company Number: US-GENZYME-LEUP-1000008

PATIENT

DRUGS (3)
  1. LEUPROLIDE ACETATE [Suspect]
     Indication: OVULATION INDUCTION
     Dosage: 250 MCG, BID
     Route: 058
  2. PERGONAL [Concomitant]
     Indication: OVULATION INDUCTION
     Dosage: UNK, QD
     Route: 065
  3. CHORIONIC GONADOTROPIN [Concomitant]
     Indication: OVULATION INDUCTION
     Dosage: 10000 U, UNK
     Route: 030

REACTIONS (1)
  - COLON CANCER METASTATIC [None]
